FAERS Safety Report 6336850-4 (Version None)
Quarter: 2009Q3

REPORT INFORMATION
  Report Type: 
  Country: None (occurrence: None)
  Receive Date: 20090901
  Receipt Date: 20090826
  Transmission Date: 20100115
  Serious: No
  Sender: FDA-Public Use
  Company Number: US-B.I. PHARMACEUTICALS,INC./RIDGEFIELD-2009-BP-10100BP

PATIENT
  Age: 24 Year
  Sex: Female

DRUGS (7)
  1. ZANTAC 150 [Suspect]
     Indication: APHONIA
     Dosage: 600 MG
     Route: 048
     Dates: start: 20090801
  2. ZANTAC 150 [Suspect]
     Indication: GASTROOESOPHAGEAL REFLUX DISEASE
  3. NEXIUM [Concomitant]
     Indication: APHONIA
     Dosage: 80 MG
     Route: 048
     Dates: start: 20090801
  4. NEXIUM [Concomitant]
     Indication: GASTROOESOPHAGEAL REFLUX DISEASE
  5. NASONEX [Concomitant]
     Indication: APHONIA
     Route: 045
     Dates: start: 20090801
  6. NASONEX [Concomitant]
     Indication: GASTROOESOPHAGEAL REFLUX DISEASE
  7. NUVARING [Concomitant]
     Indication: CONTRACEPTION
     Route: 067
     Dates: start: 20070101

REACTIONS (2)
  - OVERDOSE [None]
  - VOMITING [None]
